FAERS Safety Report 8464922-7 (Version None)
Quarter: 2012Q2

REPORT INFORMATION
  Report Type: 
  Country: None (occurrence: None)
  Receive Date: 20120626
  Receipt Date: 20120621
  Transmission Date: 20120825
  Serious: Yes (Hospitalization)
  Sender: FDA-Public Use
  Company Number: US-BAYER-2011-081786

PATIENT
  Age: 34 Year
  Sex: Female

DRUGS (6)
  1. PROTON PUMP INHIBITORS [Concomitant]
     Indication: OESOPHAGITIS
  2. YAZ [Suspect]
     Dosage: UNK
     Dates: start: 20070124, end: 20091026
  3. ALDACTONE [Concomitant]
     Dosage: UNK
  4. TOPAMAX [Concomitant]
     Indication: MIGRAINE
     Dosage: UNK
     Dates: start: 20090101, end: 20110101
  5. SPIRONOLACTONE [Concomitant]
     Dosage: UNK
     Dates: start: 20090101, end: 20100101
  6. METFORMIN HCL [Concomitant]
     Dosage: UNK

REACTIONS (2)
  - COLITIS ISCHAEMIC [None]
  - PAIN [None]
